FAERS Safety Report 13693768 (Version 1)
Quarter: 2017Q2

REPORT INFORMATION
  Report Type: Spontaneous
  Country: US (occurrence: US)
  Receive Date: 20170626
  Receipt Date: 20170626
  Transmission Date: 20170830
  Serious: Yes (Disabling)
  Sender: FDA-Public Use
  Company Number: None

PATIENT
  Age: 62 Year
  Sex: Female
  Weight: 74.25 kg

DRUGS (2)
  1. CYMBALTA [Concomitant]
     Active Substance: DULOXETINE HYDROCHLORIDE
  2. KLONOPIN [Suspect]
     Active Substance: CLONAZEPAM
     Indication: POST-TRAUMATIC STRESS DISORDER
     Dosage: ?          QUANTITY:90 TABLET(S);?
     Route: 048
     Dates: start: 19900101, end: 20151108

REACTIONS (3)
  - Memory impairment [None]
  - Cognitive disorder [None]
  - Withdrawal syndrome [None]

NARRATIVE: CASE EVENT DATE: 20150501
